FAERS Safety Report 4486866-8 (Version None)
Quarter: 2004Q3

REPORT INFORMATION
  Report Type: 
  Country: None (occurrence: None)
  Receive Date: 20040921
  Receipt Date: 20040430
  Transmission Date: 20050211
  Serious: Yes (Death)
  Sender: FDA-Public Use
  Company Number: 008-20785-04050019

PATIENT
  Age: 10 Month
  Sex: Male

DRUGS (1)
  1. THALIDOMIDE - PHARMION (THALIDOMIDE) (50 MILLIGRAM, CAPSULES) [Suspect]
     Indication: BRAIN NEOPLASM
     Dosage: ORAL
     Route: 048
     Dates: end: 20040401

REACTIONS (3)
  - DEATH [None]
  - DISEASE PROGRESSION [None]
  - SOMNOLENCE [None]
